FAERS Safety Report 25479292 (Version 1)
Quarter: 2025Q2

REPORT INFORMATION
  Report Type: Spontaneous
  Country: US (occurrence: None)
  Receive Date: 20250620
  Receipt Date: 20250620
  Transmission Date: 20250716
  Serious: No
  Sender: FDA-CTU
  Company Number: None

PATIENT

DRUGS (1)
  1. TRULICITY [Suspect]
     Active Substance: DULAGLUTIDE

REACTIONS (4)
  - Therapy interrupted [None]
  - Gait inability [None]
  - Ulcer [None]
  - Wound [None]

NARRATIVE: CASE EVENT DATE: 20250619
